FAERS Safety Report 16510126 (Version 2)
Quarter: 2019Q3

REPORT INFORMATION
  Report Type: Spontaneous
  Country: RO (occurrence: RO)
  Receive Date: 20190702
  Receipt Date: 20190725
  Transmission Date: 20191004
  Serious: Yes (Death, Life-Threatening, Hospitalization, Other)
  Sender: FDA-Public Use
  Company Number: RO-BRISTOL-MYERS SQUIBB COMPANY-BMS-2019-063952

PATIENT
  Age: 80 Year
  Sex: Male

DRUGS (1)
  1. ELIQUIS [Suspect]
     Active Substance: APIXABAN
     Indication: CEREBROVASCULAR ACCIDENT PROPHYLAXIS
     Dosage: 5 MILLIGRAM, BID
     Route: 048
     Dates: start: 20190530, end: 20190616

REACTIONS (6)
  - Duodenal ulcer [Unknown]
  - Oesophagitis [Unknown]
  - Gastric ulcer [Unknown]
  - Upper gastrointestinal haemorrhage [Fatal]
  - Haemoglobin decreased [Unknown]
  - Melaena [Fatal]

NARRATIVE: CASE EVENT DATE: 201906
